FAERS Safety Report 10452541 (Version 2)
Quarter: 2014Q4

REPORT INFORMATION
  Report Type: Spontaneous
  Country: US (occurrence: None)
  Receive Date: 20140911
  Receipt Date: 20141006
  Transmission Date: 20150528
  Serious: Yes (Death)
  Sender: FDA-Public Use
  Company Number: 2014AP004414

PATIENT
  Age: 42 Year
  Sex: Male
  Weight: 60.5 kg

DRUGS (5)
  1. FERRIPROX [Suspect]
     Active Substance: DEFERIPRONE
     Indication: HAEMOCHROMATOSIS
     Route: 048
     Dates: start: 20140618, end: 20140715
  2. FERRIPROX [Suspect]
     Active Substance: DEFERIPRONE
     Indication: TRANSFUSION
     Route: 048
     Dates: start: 20140618, end: 20140715
  3. DILAUDID [Concomitant]
     Active Substance: HYDROMORPHONE HYDROCHLORIDE
  4. FERRIPROX [Suspect]
     Active Substance: DEFERIPRONE
     Indication: SICKLE CELL ANAEMIA
     Route: 048
     Dates: start: 20140618, end: 20140715
  5. DESFERAL (DEFEROXAMINE MESILATE) [Concomitant]

REACTIONS (3)
  - Iron overload [None]
  - Hepatic failure [None]
  - Death [None]

NARRATIVE: CASE EVENT DATE: 201408
